FAERS Safety Report 5220573-9 (Version None)
Quarter: 2007Q1

REPORT INFORMATION
  Report Type: 
  Country: None (occurrence: None)
  Receive Date: 20070126
  Receipt Date: 20070117
  Transmission Date: 20070707
  Serious: Yes (Other)
  Sender: FDA-Public Use
  Company Number: PHBS2007JP01274

PATIENT
  Age: 17 Year
  Sex: Male

DRUGS (6)
  1. TEGRETOL [Suspect]
     Dosage: 600 MG/DAY
     Route: 048
  2. ALEVIATIN [Concomitant]
     Route: 048
  3. EXCEGRAN [Concomitant]
     Route: 048
  4. MYSTAN [Concomitant]
     Route: 048
  5. DEPAKENE [Concomitant]
     Route: 048
  6. PRIMIDONE [Concomitant]
     Route: 048

REACTIONS (2)
  - BLINDNESS [None]
  - LOSS OF CONSCIOUSNESS [None]
